FAERS Safety Report 8488636-2 (Version None)
Quarter: 2012Q3

REPORT INFORMATION
  Report Type: 
  Country: None (occurrence: None)
  Receive Date: 20120705
  Receipt Date: 20120625
  Transmission Date: 20120928
  Serious: Yes (Hospitalization, Other)
  Sender: FDA-Public Use
  Company Number: JP-VERTEX PHARMACEUTICALS INC.-AE-2012-009476

PATIENT
  Age: 64 Year
  Sex: Male

DRUGS (10)
  1. TALION [Concomitant]
     Route: 048
     Dates: start: 20120511, end: 20120620
  2. TREBIANOM [Concomitant]
     Route: 048
     Dates: end: 20120620
  3. SITAGLIPTIN PHOSPHATE [Concomitant]
     Route: 048
     Dates: start: 20120516, end: 20120620
  4. FEBURIC [Concomitant]
     Route: 048
     Dates: start: 20120525, end: 20120620
  5. TELAVIC (TELAPREVIR) [Suspect]
     Indication: HEPATITIS C
     Route: 048
     Dates: start: 20120511, end: 20120620
  6. NEO-MINOPHAGEN C [Concomitant]
     Dates: end: 20120615
  7. PEG-INTRON [Concomitant]
     Indication: HEPATITIS C
     Route: 058
     Dates: start: 20120511, end: 20120615
  8. FAMOSTAGINE-D [Concomitant]
     Route: 048
     Dates: end: 20120620
  9. REBETOL [Concomitant]
     Indication: HEPATITIS C
     Route: 048
     Dates: start: 20120511, end: 20120620
  10. URDESTON [Concomitant]
     Route: 048
     Dates: end: 20120620

REACTIONS (2)
  - ANAEMIA [None]
  - PANCREATITIS ACUTE [None]
